FAERS Safety Report 8833279 (Version 6)
Quarter: 2013Q2

REPORT INFORMATION
  Report Type: Report from Study
  Country: NO (occurrence: NO)
  Receive Date: 20121010
  Receipt Date: 20130625
  Transmission Date: 20140414
  Serious: Yes (Hospitalization)
  Sender: FDA-Public Use
  Company Number: NO-ROCHE-1139612

PATIENT
  Age: 61 Year
  Sex: Male
  Weight: 104 kg

DRUGS (4)
  1. PEG-INTERFERON ALFA 2A [Suspect]
     Indication: HEPATITIS C
     Route: 042
     Dates: start: 20120813, end: 20121016
  2. RIBAVIRIN [Suspect]
     Indication: HEPATITIS C
     Route: 048
     Dates: start: 20120813, end: 20121017
  3. BLINDED TMC435 (NS3/4A PROTEASE INHIBITOR) [Suspect]
     Indication: HEPATITIS C
     Route: 048
     Dates: start: 20120813, end: 20121017
  4. BLINDED TELAPREVIR [Suspect]
     Indication: HEPATITIS C
     Dosage: DAILY DOSE: 6 TABLET
     Route: 048
     Dates: start: 20120813, end: 20121017

REACTIONS (2)
  - Appendicitis [Recovered/Resolved]
  - Anaemia [Recovering/Resolving]
